FAERS Safety Report 5905662-5 (Version None)
Quarter: 2008Q4

REPORT INFORMATION
  Report Type: 
  Country: None (occurrence: None)
  Receive Date: 20081002
  Receipt Date: 20080924
  Transmission Date: 20090506
  Serious: Yes (Hospitalization)
  Sender: FDA-Public Use
  Company Number: US-ASTRAZENECA-2008UW20038

PATIENT
  Sex: Male

DRUGS (1)
  1. PRILOSEC [Suspect]
     Indication: GASTROINTESTINAL HAEMORRHAGE
     Route: 048

REACTIONS (3)
  - ASPIRATION [None]
  - MEDICATION ERROR [None]
  - TRANSIENT ISCHAEMIC ATTACK [None]
